FAERS Safety Report 11266452 (Version 1)
Quarter: 2015Q3

REPORT INFORMATION
  Report Type: Spontaneous
  Country: PL (occurrence: PL)
  Receive Date: 20150713
  Receipt Date: 20150713
  Transmission Date: 20151125
  Serious: Yes (Hospitalization)
  Sender: FDA-Public Use
  Company Number: PHHY2015PL083099

PATIENT
  Age: 58 Year
  Sex: Female

DRUGS (1)
  1. AMOXICILLIN SODIUM+POTASSIUM CLAVULANATE [Suspect]
     Active Substance: AMOXICILLIN\CLAVULANATE POTASSIUM
     Indication: BRONCHITIS
     Route: 065

REACTIONS (4)
  - Balance disorder [Unknown]
  - Dehydration [Unknown]
  - Slow speech [Unknown]
  - Nausea [Unknown]
